FAERS Safety Report 6963273 (Version 6)
Quarter: 2015Q4

REPORT INFORMATION
  Report Type: Report from Study
  Country: US (occurrence: US)
  Receive Date: 20060525
  Receipt Date: 20151012
  Transmission Date: 20160305
  Serious: Yes (Hospitalization)
  Sender: FDA-Public Use
  Company Number: US-BIOGENIDEC-2006BI007291

PATIENT
  Age: 55 Year
  Sex: Female

DRUGS (6)
  1. AVONEX [Suspect]
     Active Substance: INTERFERON BETA-1A
     Indication: MULTIPLE SCLEROSIS
     Route: 030
     Dates: start: 20130509
  2. AVONEX [Suspect]
     Active Substance: INTERFERON BETA-1A
     Indication: MULTIPLE SCLEROSIS
     Route: 030
     Dates: start: 20030206, end: 20130502
  3. NORVASC [Concomitant]
     Active Substance: AMLODIPINE BESYLATE
  4. AVONEX [Suspect]
     Active Substance: INTERFERON BETA-1A
     Indication: MULTIPLE SCLEROSIS
     Route: 030
     Dates: start: 2000
  5. LISINOPRIL. [Concomitant]
     Active Substance: LISINOPRIL
  6. AVONEX [Suspect]
     Active Substance: INTERFERON BETA-1A
     Indication: MULTIPLE SCLEROSIS
     Route: 030
     Dates: start: 200102

REACTIONS (8)
  - Uterovaginal prolapse [Recovered/Resolved]
  - Infection [Recovered/Resolved]
  - Multiple sclerosis relapse [Recovered/Resolved]
  - Emotional distress [Unknown]
  - Constipation [Recovered/Resolved]
  - Dysuria [Recovered/Resolved]
  - Adverse drug reaction [Recovered/Resolved]
  - Injection site pain [Recovered/Resolved]

NARRATIVE: CASE EVENT DATE: 200604
